FAERS Safety Report 10481693 (Version 1)
Quarter: 2014Q3

REPORT INFORMATION
  Report Type: Spontaneous
  Country: US (occurrence: None)
  Receive Date: 20140908
  Receipt Date: 20140908
  Transmission Date: 20150326
  Serious: Yes (Hospitalization)
  Sender: FDA-Public Use
  Company Number: 395730

PATIENT
  Age: 67 Year
  Sex: Female

DRUGS (5)
  1. LISINOPRIL(LISINOPRIL) [Concomitant]
     Active Substance: LISINOPRIL
  2. VICTOZA [Suspect]
     Active Substance: LIRAGLUTIDE
     Indication: PRODUCT USED FOR UNKNOWN INDICATION
     Route: 058
  3. TOVIAZ(FESOTERODNE FUMARATE ) [Concomitant]
  4. PLAVIX(CLOPIDOGREL BISULFATE) [Concomitant]
  5. GLIPIZIDE(GLIPIZIDE) [Concomitant]

REACTIONS (2)
  - Blood creatinine increased [None]
  - Glomerular filtration rate decreased [None]
